FAERS Safety Report 16561944 (Version 1)
Quarter: 2019Q3

REPORT INFORMATION
  Report Type: Spontaneous
  Country: US (occurrence: US)
  Receive Date: 20190711
  Receipt Date: 20190711
  Transmission Date: 20191004
  Serious: Yes (Other)
  Sender: FDA-Public Use
  Company Number: US-BRAINTREE LABORATORIES-190379

PATIENT
  Age: 62 Year
  Sex: Female
  Weight: 50.8 kg

DRUGS (1)
  1. SUPREP BOWEL PREP [Suspect]
     Active Substance: MAGNESIUM SULFATE\POTASSIUM SULFATE\SODIUM SULFATE
     Indication: COLONOSCOPY
     Dosage: 1 X 6 OZ. BOTTLE
     Route: 048
     Dates: start: 20190618, end: 20190618

REACTIONS (4)
  - Muscle tightness [None]
  - Syncope [None]
  - Neck pain [None]
  - Head injury [None]

NARRATIVE: CASE EVENT DATE: 20190619
